FAERS Safety Report 19838061 (Version 1)
Quarter: 2021Q3

REPORT INFORMATION
  Report Type: Spontaneous
  Country: DE (occurrence: DE)
  Receive Date: 20210916
  Receipt Date: 20210916
  Transmission Date: 20211014
  Serious: Yes (Hospitalization)
  Sender: FDA-Public Use
  Company Number: DE-TEVA-2021-DE-1951513

PATIENT
  Age: 79 Year
  Sex: Female

DRUGS (9)
  1. EDOXABAN [Concomitant]
     Active Substance: EDOXABAN TOSYLATE
     Dosage: 60 MILLIGRAM DAILY;   1?0?0?0
     Route: 048
  2. ENTRESTO [Concomitant]
     Active Substance: SACUBITRIL\VALSARTAN
     Dosage: 2 DOSAGE FORMS DAILY; 51|49 MG, 1?0?1?0,
     Route: 048
  3. AMLODIPIN [Suspect]
     Active Substance: AMLODIPINE BESYLATE
     Dosage: .5 DOSAGE FORMS DAILY; 10 MG, 0.5?0?0?0,
     Route: 048
  4. FUROSEMID [Concomitant]
     Active Substance: FUROSEMIDE
     Dosage: .5 DOSAGE FORMS DAILY; 20 MG, 0.5?0?0?0
     Route: 048
  5. IVABRADIN [Suspect]
     Active Substance: IVABRADINE
     Dosage: 10 MILLIGRAM DAILY;  1?0?1?0
     Route: 048
  6. METFORMIN [Concomitant]
     Active Substance: METFORMIN HYDROCHLORIDE
     Dosage: 1000 MILLIGRAM DAILY;   0?0?1?0
     Route: 048
  7. EZETIMIB/SIMVASTATIN [Concomitant]
     Active Substance: EZETIMIBE\SIMVASTATIN
     Dosage: 1 DOSAGE FORMS DAILY; 10|20 MG, 1?0?0?0,
     Route: 048
  8. EMPAGLIFLOZIN [Concomitant]
     Active Substance: EMPAGLIFLOZIN
     Dosage: 25 MILLIGRAM DAILY;  1?0?0?0
     Route: 048
  9. BECLOMETASON/FORMOTEROL [Concomitant]
     Dosage: 2 DOSAGE FORMS DAILY; 6 | 100 MCG, 1?0?1?0, METERED DOSE INHALER
     Route: 048

REACTIONS (4)
  - Angina pectoris [Unknown]
  - Oedema peripheral [Unknown]
  - Dyspnoea [Unknown]
  - Cough [Unknown]
